FAERS Safety Report 25325519 (Version 6)
Quarter: 2025Q3

REPORT INFORMATION
  Report Type: Spontaneous
  Country: CN (occurrence: CN)
  Receive Date: 20250516
  Receipt Date: 20250807
  Transmission Date: 20251020
  Serious: Yes (Hospitalization)
  Sender: ELI LILLY AND COMPANY
  Company Number: CN-ELI_LILLY_AND_COMPANY-CN202505007370

PATIENT
  Age: 43 Year
  Sex: Female
  Weight: 66 kg

DRUGS (1)
  1. MOUNJARO [Suspect]
     Active Substance: TIRZEPATIDE
     Indication: Weight control
     Dosage: 2.5 MG, WEEKLY (1/W)
     Route: 058
     Dates: start: 20250429

REACTIONS (5)
  - Chronic gastritis [Recovered/Resolved]
  - Oesophageal rupture [Recovered/Resolved]
  - Gastrooesophageal haemorrhage [Recovered/Resolved]
  - Gastritis erosive [Recovered/Resolved]
  - Venous aneurysm [Recovered/Resolved]

NARRATIVE: CASE EVENT DATE: 20250429
